FAERS Safety Report 12764016 (Version 2)
Quarter: 2016Q3

REPORT INFORMATION
  Report Type: Other
  Country: TW (occurrence: TW)
  Receive Date: 20160920
  Receipt Date: 20160928
  Transmission Date: 20161109
  Serious: Yes (Death, Hospitalization)
  Sender: FDA-Public Use
  Company Number: TW-UNITED THERAPEUTICS-UNT-2016-014632

PATIENT
  Age: 38 Year
  Sex: Male
  Weight: 93 kg

DRUGS (1)
  1. REMODULIN [Suspect]
     Active Substance: TREPROSTINIL
     Indication: PULMONARY ARTERIAL HYPERTENSION
     Dosage: 0.060 ?G/KG, CONTINUING
     Route: 041
     Dates: start: 20160128

REACTIONS (7)
  - Nausea [Unknown]
  - Complication associated with device [Recovered/Resolved]
  - Loss of consciousness [Unknown]
  - Blood pressure decreased [Not Recovered/Not Resolved]
  - Drug dose omission [Not Recovered/Not Resolved]
  - Disease progression [Fatal]
  - Vomiting [Unknown]

NARRATIVE: CASE EVENT DATE: 20160912
